FAERS Safety Report 6482980-6 (Version None)
Quarter: 2009Q4

REPORT INFORMATION
  Report Type: 
  Country: None (occurrence: None)
  Receive Date: 20091209
  Receipt Date: 20091123
  Transmission Date: 20100525
  Serious: No
  Sender: FDA-Public Use
  Company Number: GB-ROCHE-670504

PATIENT
  Age: 10 Year

DRUGS (2)
  1. TAMIFLU [Suspect]
     Indication: DRUG USE FOR UNKNOWN INDICATION
     Dosage: GIVEN ONE ON FRIDAY EVENING AND ONE SATURDAY MORNING
     Route: 065
  2. TAMIFLU [Suspect]
     Dosage: CORRECT DOSE GIVEN SATURDAY EVENING
     Route: 065

REACTIONS (2)
  - INCORRECT DOSE ADMINISTERED [None]
  - NO ADVERSE EVENT [None]
